FAERS Safety Report 9113528 (Version 1)
Quarter: 2013Q1

REPORT INFORMATION
  Report Type: Report from Study
  Country: US (occurrence: US)
  Receive Date: 20130129
  Receipt Date: 20130129
  Transmission Date: 20140127
  Serious: No
  Sender: FDA-Public Use
  Company Number: US-ABBOTT-12P-163-0941922-00

PATIENT
  Sex: Female

DRUGS (22)
  1. HUMIRA 40 MG/0.8 ML PEN [Suspect]
     Indication: CROHN^S DISEASE
     Dates: start: 20120427
  2. PREDNISONE [Concomitant]
     Indication: PRODUCT USED FOR UNKNOWN INDICATION
  3. BENADRYL [Concomitant]
     Indication: PRODUCT USED FOR UNKNOWN INDICATION
  4. MIRAPEX [Concomitant]
     Indication: RESTLESS LEGS SYNDROME
     Dosage: 75MG DAILY
  5. HYOSCYAMINE [Concomitant]
     Indication: AUTOMATIC BLADDER
     Dosage: .125MG DAILY
  6. MERCAPTOPURINE [Concomitant]
     Indication: CROHN^S DISEASE
     Dosage: 100MG = 2 DAILY
  7. TEMAZEPAM [Concomitant]
     Indication: INSOMNIA
  8. ACYCLOVIR [Concomitant]
     Indication: HERPES ZOSTER
  9. ESTRACE [Concomitant]
     Indication: UNEVALUABLE EVENT
  10. OTC ESTROVEN [Concomitant]
     Indication: PRODUCT USED FOR UNKNOWN INDICATION
  11. B-12 [Concomitant]
     Indication: PRODUCT USED FOR UNKNOWN INDICATION
     Dosage: MONTHLY
  12. MOMETASONE FUROATE [Concomitant]
     Indication: RASH
  13. DESONIDE [Concomitant]
     Indication: RASH
  14. NAPROXEN [Concomitant]
     Indication: PAIN
  15. LAMOTIL [Concomitant]
     Indication: DIARRHOEA
  16. ARBONNE [Concomitant]
     Indication: PRODUCT USED FOR UNKNOWN INDICATION
  17. WOMEN^S DAILY POWER PACK [Concomitant]
     Indication: PRODUCT USED FOR UNKNOWN INDICATION
     Dosage: DAILY AT NIGHT
  18. CALCIUM [Concomitant]
     Indication: PRODUCT USED FOR UNKNOWN INDICATION
  19. PROAMEBA [Concomitant]
     Indication: PRODUCT USED FOR UNKNOWN INDICATION
  20. DULCOLAX [Concomitant]
     Indication: PRODUCT USED FOR UNKNOWN INDICATION
  21. CETIRIZINE HCL [Concomitant]
     Indication: MYCOTIC ALLERGY
  22. VOLTAREN [Concomitant]
     Indication: JOINT INJURY
     Dosage: GEL

REACTIONS (3)
  - Muscle disorder [Recovering/Resolving]
  - Back pain [Recovered/Resolved]
  - Nausea [Recovered/Resolved]
